FAERS Safety Report 6780043-3 (Version None)
Quarter: 2010Q2

REPORT INFORMATION
  Report Type: 
  Country: None (occurrence: None)
  Receive Date: 20100618
  Receipt Date: 20100608
  Transmission Date: 20101027
  Serious: Yes (Other)
  Sender: FDA-Public Use
  Company Number: US-PFIZER INC-2010062957

PATIENT
  Sex: Male
  Weight: 75 kg

DRUGS (2)
  1. CHANTIX [Suspect]
     Indication: SMOKING CESSATION THERAPY
     Dates: start: 20100401, end: 20100101
  2. TRAMADOL HCL [Suspect]
     Indication: PAIN

REACTIONS (3)
  - ABNORMAL BEHAVIOUR [None]
  - DRUG INTERACTION [None]
  - MENTAL IMPAIRMENT [None]
